FAERS Safety Report 15215244 (Version 6)
Quarter: 2018Q3

REPORT INFORMATION
  Report Type: Report from Study
  Country: DE (occurrence: DE)
  Receive Date: 20180730
  Receipt Date: 20180925
  Transmission Date: 20181010
  Serious: Yes (Life-Threatening, Other)
  Sender: FDA-Public Use
  Company Number: DE-PFIZER INC-2018302771

PATIENT
  Age: 21 Year
  Sex: Male

DRUGS (11)
  1. VENLAFAXINE HCL [Suspect]
     Active Substance: VENLAFAXINE HYDROCHLORIDE
     Dosage: 100 MG, 1X/DAY
     Route: 048
     Dates: start: 20171128, end: 20171213
  2. CHLORPROTHIXENE [Suspect]
     Active Substance: CHLORPROTHIXENE
     Indication: SUICIDE ATTEMPT
     Dosage: 50 MG, 1X/DAY
     Route: 048
     Dates: end: 20171213
  3. LORAZEPAM. [Suspect]
     Active Substance: LORAZEPAM
     Dosage: 0.5 MG, 1X/DAY
     Route: 048
     Dates: start: 20171216
  4. AMITRIPTYLINE [Suspect]
     Active Substance: AMITRIPTYLINE
     Dosage: 1 G, ONCE FOR SUICIDE ATTEMPT
     Route: 048
     Dates: start: 20171213, end: 20171213
  5. LORAZEPAM. [Suspect]
     Active Substance: LORAZEPAM
     Dosage: 3 MG, 1X/DAY
     Route: 048
     Dates: start: 20171128, end: 20171213
  6. PIPAMPERONE [Suspect]
     Active Substance: PIPAMPERONE
     Indication: SUICIDE ATTEMPT
     Dosage: 400 MG, SINGLE
     Route: 048
     Dates: start: 20171213, end: 20171213
  7. LORAZEPAM. [Suspect]
     Active Substance: LORAZEPAM
     Dosage: 20 MG, ONCE FOR SUICIDE ATTEMPT
     Route: 048
     Dates: start: 20171213, end: 20171213
  8. CHLORPROTHIXENE [Suspect]
     Active Substance: CHLORPROTHIXENE
     Dosage: 250 MG, ONCE FOR SUICIDE ATTEMPT
     Route: 048
     Dates: start: 20171213, end: 20171213
  9. CHLORPROTHIXENE [Suspect]
     Active Substance: CHLORPROTHIXENE
     Dosage: 50 MG, 1X/DAY
     Route: 048
     Dates: start: 20171216
  10. AMITRIPTYLINE [Suspect]
     Active Substance: AMITRIPTYLINE
     Indication: SUICIDE ATTEMPT
     Dosage: 100 MG, 1X/DAY
     Route: 048
     Dates: end: 20171213
  11. AMITRIPTYLINE [Suspect]
     Active Substance: AMITRIPTYLINE
     Dosage: 50 MG, 1X/DAY
     Route: 048
     Dates: start: 20171215

REACTIONS (2)
  - Suicide attempt [Recovered/Resolved]
  - Intentional overdose [Unknown]

NARRATIVE: CASE EVENT DATE: 20171213
